FAERS Safety Report 4869167-5 (Version None)
Quarter: 2005Q4

REPORT INFORMATION
  Report Type: 
  Country: None (occurrence: None)
  Receive Date: 20051227
  Receipt Date: 20051216
  Transmission Date: 20060501
  Serious: Yes (Hospitalization)
  Sender: FDA-Public Use
  Company Number: HQWYE082619DEC05

PATIENT
  Age: 24 Year
  Sex: Female

DRUGS (7)
  1. RAPAMUNE (SIROLIMUS, TABLET)  LOT NO.: 2005P0568, 2005P0567 [Suspect]
     Indication: PROPHYLAXIS AGAINST TRANSPLANT REJECTION
     Dosage: 3 MG 1X PER 1 DAY
     Route: 048
     Dates: start: 20051129
  2. MYCOPHENOLATE MOFETIL (MYCOPHENOLATE MOFETIL) [Concomitant]
  3. CORTICOSTEROID NOS (CORTICOSTEROID  NOS) [Concomitant]
  4. NYSTATIN [Concomitant]
  5. CALCIUM CARBONATE (CALCIUM CARBONATE) [Concomitant]
  6. POTASSIUM (POTASSIUM) [Concomitant]
  7. CALCITRIOL [Concomitant]

REACTIONS (7)
  - BLOOD CREATINE INCREASED [None]
  - BLOOD POTASSIUM DECREASED [None]
  - BLOOD UREA INCREASED [None]
  - HAEMATOCRIT DECREASED [None]
  - HAEMATOMA [None]
  - WHITE BLOOD CELL COUNT INCREASED [None]
  - WOUND COMPLICATION [None]
